FAERS Safety Report 4946397-5 (Version None)
Quarter: 2006Q1

REPORT INFORMATION
  Report Type: 
  Country: None (occurrence: None)
  Receive Date: 20060317
  Receipt Date: 20060307
  Transmission Date: 20060701
  Serious: Yes (Other)
  Sender: FDA-Public Use
  Company Number: CA-JNJFOC-20060301965

PATIENT
  Sex: Male
  Weight: 88 kg

DRUGS (11)
  1. REMICADE [Suspect]
     Route: 042
  2. REMICADE [Suspect]
     Route: 042
  3. REMICADE [Suspect]
     Route: 042
  4. REMICADE [Suspect]
     Route: 042
  5. REMICADE [Suspect]
     Route: 042
  6. BENADRYL [Concomitant]
     Indication: PREMEDICATION
     Route: 048
  7. TYLENOL (CAPLET) [Concomitant]
     Indication: PREMEDICATION
     Route: 048
  8. ATIVAN [Concomitant]
     Indication: PREMEDICATION
     Route: 060
  9. SOLU-CORTEF [Concomitant]
     Indication: PREMEDICATION
     Route: 042
  10. METHOTREXATE [Concomitant]
     Route: 048
  11. NOVO-DIFENAC [Concomitant]
     Route: 048

REACTIONS (7)
  - ANXIETY [None]
  - CHOKING [None]
  - DYSPHAGIA [None]
  - DYSPNOEA [None]
  - ERYTHEMA [None]
  - INFUSION RELATED REACTION [None]
  - PYREXIA [None]
